FAERS Safety Report 9263941 (Version 1)
Quarter: 2013Q2

REPORT INFORMATION
  Report Type: Spontaneous
  Country: US (occurrence: US)
  Receive Date: 20130430
  Receipt Date: 20130430
  Transmission Date: 20140414
  Serious: Yes (Hospitalization, Disabling, Other)
  Sender: FDA-Public Use
  Company Number: US-MYLANLABS-2013S1008938

PATIENT
  Age: 54 Year
  Sex: Female

DRUGS (1)
  1. ALLOPURINOL TABLETS, USP [Suspect]
     Indication: GOUT
     Dates: start: 20110414, end: 2011

REACTIONS (9)
  - Stevens-Johnson syndrome [Recovered/Resolved]
  - Toxic epidermal necrolysis [Recovered/Resolved]
  - Visual acuity reduced [Not Recovered/Not Resolved]
  - Hypoacusis [Not Recovered/Not Resolved]
  - Quality of life decreased [Not Recovered/Not Resolved]
  - Self esteem decreased [Not Recovered/Not Resolved]
  - Depression [Not Recovered/Not Resolved]
  - Anxiety [Not Recovered/Not Resolved]
  - Photosensitivity reaction [Not Recovered/Not Resolved]
